FAERS Safety Report 5251331-7 (Version None)
Quarter: 2007Q1

REPORT INFORMATION
  Report Type: 
  Country: None (occurrence: None)
  Receive Date: 20070228
  Receipt Date: 20070221
  Transmission Date: 20070707
  Serious: Yes (Other)
  Sender: FDA-Public Use
  Company Number: 2007UW03391

PATIENT
  Sex: Female

DRUGS (4)
  1. SYMBICORT [Suspect]
     Route: 055
     Dates: start: 20060501
  2. RANITIDINE [Concomitant]
     Route: 048
     Dates: start: 20010101
  3. FLOVENT [Concomitant]
     Route: 055
     Dates: start: 20061201
  4. DYAZIDE [Concomitant]
     Route: 048
     Dates: start: 20040101

REACTIONS (2)
  - BRONCHIAL HAEMORRHAGE [None]
  - NASOPHARYNGITIS [None]
